FAERS Safety Report 13550991 (Version 2)
Quarter: 2017Q2

REPORT INFORMATION
  Report Type: Report from Study
  Country: PL (occurrence: PL)
  Receive Date: 20170516
  Receipt Date: 20170523
  Transmission Date: 20170830
  Serious: Yes (Hospitalization)
  Sender: FDA-Public Use
  Company Number: PL-OTSUKA-2016_020617

PATIENT
  Age: 58 Year
  Sex: Male
  Weight: 86 kg

DRUGS (16)
  1. TOLVAPTAN [Suspect]
     Active Substance: TOLVAPTAN
     Dosage: 90 MG, QD (3 TABS OF 30 MG IN MORNING) (TOLVAPTAN RUN-IN PHASE)
     Route: 048
     Dates: start: 20160223, end: 20160315
  2. TOLVAPTAN [Suspect]
     Active Substance: TOLVAPTAN
     Dosage: 30 MG, QD (1 TAB OF 30 MG IN EVENING) (TOLVAPTAN RUN-IN PHASE)
     Route: 048
     Dates: start: 20160223, end: 20160315
  3. TOLVAPTAN [Suspect]
     Active Substance: TOLVAPTAN
     Dosage: 30 MG, QD (IN EVENING) (TOLVAPTAN RANDOMIZATION PHASE)
     Route: 048
     Dates: start: 20170303, end: 20170309
  4. TOLVAPTAN [Suspect]
     Active Substance: TOLVAPTAN
     Dosage: 30 MG, QD (1 TAB OF 30 MG IN EVENING) (TOLVAPTAN TITRATION PHASE)
     Route: 048
     Dates: start: 20160213, end: 20160222
  5. VALSARTAN. [Concomitant]
     Active Substance: VALSARTAN
     Indication: HYPERTENSION
     Dosage: 160 MG, QD
     Route: 048
     Dates: start: 2009
  6. METOPROLOL. [Concomitant]
     Active Substance: METOPROLOL
     Indication: HYPERTENSION
     Dosage: 50 MG, QD
     Route: 048
     Dates: start: 2009
  7. LACIDIPINE [Concomitant]
     Active Substance: LACIDIPINE
     Indication: HYPERTENSION
     Dosage: 4 MG, QD
     Route: 048
     Dates: start: 2009
  8. TOLVAPTAN [Suspect]
     Active Substance: TOLVAPTAN
     Dosage: PLACEBO, QD (IN MORNING)
     Route: 048
     Dates: start: 20160202, end: 20160208
  9. TOLVAPTAN [Suspect]
     Active Substance: TOLVAPTAN
     Dosage: 90 MG, QD (IN MORNING) (TOLVAPTAN RANDOMIZATION PHASE)
     Route: 048
     Dates: start: 20170303, end: 20170309
  10. TOLVAPTAN [Suspect]
     Active Substance: TOLVAPTAN
     Dosage: 30 MG, QD (IN EVENING) (TOLVAPTAN RANDOMIZATION PHASE)
     Route: 048
     Dates: start: 20160316, end: 20161116
  11. TOLVAPTAN [Suspect]
     Active Substance: TOLVAPTAN
     Dosage: 30 MG, QD (1 TAB OF 30 MG IN EVENING) (TOLVAPTAN TITRATION PHASE)
     Route: 048
     Dates: start: 20160209, end: 20160212
  12. TOLVAPTAN [Suspect]
     Active Substance: TOLVAPTAN
     Indication: CONGENITAL CYSTIC KIDNEY DISEASE
     Dosage: 90 MG, QD (IN MORNING) (TOLVAPTAN RANDOMIZATION PHASE)
     Route: 048
     Dates: start: 20160316, end: 20161116
  13. TOLVAPTAN [Suspect]
     Active Substance: TOLVAPTAN
     Dosage: PLACEBO, QD (IN EVENING)
     Route: 048
     Dates: start: 20160202, end: 20160208
  14. TOLVAPTAN [Suspect]
     Active Substance: TOLVAPTAN
     Dosage: 60 MG, QD (2 TABS OF 30 MG IN MORNING) (TOLVAPTAN TITRATION PHASE)
     Route: 048
     Dates: start: 20160209, end: 20160212
  15. TOLVAPTAN [Suspect]
     Active Substance: TOLVAPTAN
     Dosage: 90 MG, QD (3 TABS OF 30 MG IN MORNING) (TOLVAPTAN TITRATION PHASE)
     Route: 048
     Dates: start: 20160213, end: 20160222
  16. DOXAZOSIN [Concomitant]
     Active Substance: DOXAZOSIN\DOXAZOSIN MESYLATE
     Indication: HYPERTENSION
     Dosage: 2 MG, BID
     Route: 048
     Dates: start: 2009

REACTIONS (1)
  - Hepatic enzyme increased [Recovered/Resolved]

NARRATIVE: CASE EVENT DATE: 20160903
